FAERS Safety Report 16916737 (Version 1)
Quarter: 2019Q4

REPORT INFORMATION
  Report Type: Spontaneous
  Country: IT (occurrence: IT)
  Receive Date: 20191015
  Receipt Date: 20191015
  Transmission Date: 20200122
  Serious: Yes (Life-Threatening, Hospitalization, Other)
  Sender: FDA-Public Use
  Company Number: IT-AUROBINDO-AUR-APL-2010-01948

PATIENT
  Age: 58 Year
  Sex: Male

DRUGS (3)
  1. ZERINOL [Concomitant]
     Indication: OROPHARYNGEAL PAIN
     Dosage: UNK (300/2 MG)
     Route: 048
  2. AMOXICILLINA TABLETS 1G [Suspect]
     Active Substance: AMOXICILLIN
     Indication: TOOTHACHE
     Dosage: 1 GRAM
     Route: 065
  3. AMOXICILLIN / CLAVULANIC ACID AUROBINDO 875/125MG FILM-COATED TABLET [Suspect]
     Active Substance: AMOXICILLIN\CLAVULANIC ACID
     Indication: OROPHARYNGEAL PAIN
     Dosage: 1 GRAM
     Route: 048

REACTIONS (3)
  - Anaphylactic reaction [Recovered/Resolved]
  - Acute myocardial infarction [Recovered/Resolved]
  - Myocardial infarction [Recovered/Resolved]
